FAERS Safety Report 15027659 (Version 2)
Quarter: 2018Q3

REPORT INFORMATION
  Report Type: Report from Study
  Country: US (occurrence: US)
  Receive Date: 20180619
  Receipt Date: 20180807
  Transmission Date: 20181010
  Serious: Yes (Death, Hospitalization, Other)
  Sender: FDA-Public Use
  Company Number: US-AMGEN-USASL2018080922

PATIENT
  Age: 86 Year
  Sex: Male

DRUGS (17)
  1. PRILOSEC [Concomitant]
     Active Substance: OMEPRAZOLE MAGNESIUM
     Dosage: 40 MG, QD
  2. ASPIRIN. [Concomitant]
     Active Substance: ASPIRIN
     Dosage: 81 MG, QD
  3. SOTALOL. [Concomitant]
     Active Substance: SOTALOL
     Dosage: 80 MG, TID
     Route: 048
  4. LISINOPRIL. [Concomitant]
     Active Substance: LISINOPRIL
     Dosage: 2.5 MG, QD
  5. PROLIA [Suspect]
     Active Substance: DENOSUMAB
     Indication: OSTEOPOROSIS
     Dosage: 60 MG, Q6MO
     Route: 058
     Dates: start: 20160609
  6. LIPITOR [Concomitant]
     Active Substance: ATORVASTATIN CALCIUM
     Dosage: 40 MG, QD
  7. FLOMAX [Concomitant]
     Active Substance: TAMSULOSIN HYDROCHLORIDE
     Dosage: 0.4 MG, QD
     Route: 048
  8. PROLIA [Suspect]
     Active Substance: DENOSUMAB
     Dosage: UNK
     Route: 058
  9. DIGOXIN. [Concomitant]
     Active Substance: DIGOXIN
     Dosage: 0.125 MG, QD
  10. VITAMIN D3 [Concomitant]
     Active Substance: CHOLECALCIFEROL
     Dosage: 2000 UNIT, QD
  11. MELATONIN [Concomitant]
     Active Substance: MELATONIN
     Dosage: 5 MG, QD
  12. MAGNESIUM OXIDE. [Concomitant]
     Active Substance: MAGNESIUM OXIDE
     Dosage: 400 MG, QD
  13. LASIX [Concomitant]
     Active Substance: FUROSEMIDE
     Dosage: 40 MG, TID
  14. LIDODERM [Concomitant]
     Active Substance: LIDOCAINE
     Dosage: UNK UNK, Q12H/ DAY AS NECESSARY
  15. VOLTAREN [Concomitant]
     Active Substance: DICLOFENAC SODIUM
     Dosage: 1 %, AS NECESSARY
  16. PROLIA [Suspect]
     Active Substance: DENOSUMAB
     Dosage: UNK
     Route: 058
  17. TYLENOL [Concomitant]
     Active Substance: ACETAMINOPHEN
     Dosage: UNK UNK, AS NECESSARY

REACTIONS (17)
  - Death [Fatal]
  - Syncope [Unknown]
  - Bronchitis [Unknown]
  - Loss of consciousness [Unknown]
  - Arrhythmia [Unknown]
  - Proteinuria [Recovered/Resolved]
  - Cardiac failure congestive [Recovering/Resolving]
  - Sinusitis [Unknown]
  - Compression fracture [Unknown]
  - Atrioventricular block [Unknown]
  - Benign prostatic hyperplasia [Unknown]
  - Hyponatraemia [Recovering/Resolving]
  - Skin lesion [Unknown]
  - Orthostatic hypotension [Recovered/Resolved]
  - Type 2 diabetes mellitus [Unknown]
  - Hand fracture [Recovering/Resolving]
  - Upper respiratory tract infection [Unknown]

NARRATIVE: CASE EVENT DATE: 20170711
